FAERS Safety Report 26155997 (Version 1)
Quarter: 2025Q4

REPORT INFORMATION
  Report Type: Other
  Country: KR (occurrence: KR)
  Receive Date: 20251215
  Receipt Date: 20251215
  Transmission Date: 20260118
  Serious: Yes (Hospitalization, Other)
  Sender: NOVITIUM PHARMA
  Company Number: KR-NOVITIUM PHARMA-000389

PATIENT
  Age: 60 Year
  Sex: Female
  Weight: 38 kg

DRUGS (3)
  1. LIDOCAINE [Suspect]
     Active Substance: LIDOCAINE
     Indication: Postoperative analgesia
  2. BUPIVACAINE [Concomitant]
     Active Substance: BUPIVACAINE
     Indication: Postoperative analgesia
  3. BUPIVACAINE [Concomitant]
     Active Substance: BUPIVACAINE
     Indication: Postoperative analgesia
     Dosage: LIPOSOMAL

REACTIONS (2)
  - Overdose [Unknown]
  - Local anaesthetic systemic toxicity [Recovered/Resolved]
